FAERS Safety Report 25604863 (Version 1)
Quarter: 2025Q3

REPORT INFORMATION
  Report Type: Spontaneous
  Country: US (occurrence: US)
  Receive Date: 20250725
  Receipt Date: 20250725
  Transmission Date: 20251020
  Serious: Yes (Other)
  Sender: HIKMA
  Company Number: US-HIKMA PHARMACEUTICALS USA INC.-US-H14001-25-08652

PATIENT
  Age: 71 Year
  Sex: Female

DRUGS (4)
  1. EVEROLIMUS [Suspect]
     Active Substance: EVEROLIMUS
     Indication: Product used for unknown indication
     Route: 065
  2. VITAMIN D3 [Suspect]
     Active Substance: CHOLECALCIFEROL
     Indication: Product used for unknown indication
     Route: 065
  3. XERMELO [Suspect]
     Active Substance: TELOTRISTAT ETHYL
     Dosage: 250 MILLIGRAM, TID
     Route: 048
     Dates: start: 20250502
  4. XERMELO [Suspect]
     Active Substance: TELOTRISTAT ETHYL
     Indication: Carcinoid syndrome
     Dosage: 250 MILLIGRAM, TID
     Route: 048

REACTIONS (5)
  - Drug hypersensitivity [Recovering/Resolving]
  - Rash [Recovering/Resolving]
  - Chronic kidney disease [Unknown]
  - Osteoporosis [Unknown]
  - Product dose omission issue [Unknown]
